FAERS Safety Report 9266685 (Version 1)
Quarter: 2013Q2

REPORT INFORMATION
  Report Type: Spontaneous
  Country: US (occurrence: US)
  Receive Date: 20130502
  Receipt Date: 20130502
  Transmission Date: 20140414
  Serious: Yes (Hospitalization, Other)
  Sender: FDA-Public Use
  Company Number: US-BAYER-2013-052534

PATIENT
  Age: 23 Year
  Sex: Female
  Weight: 133.33 kg

DRUGS (7)
  1. YAZ [Suspect]
  2. BEYAZ [Suspect]
     Indication: POLYCYSTIC OVARIES
  3. METFORMIN [Concomitant]
  4. ASPIRIN [Concomitant]
  5. TOPROL [Concomitant]
  6. CEPHALEXIN [Concomitant]
  7. ARIXTRA [Concomitant]

REACTIONS (2)
  - Pulmonary embolism [None]
  - Cholelithiasis [None]
